FAERS Safety Report 22347198 (Version 4)
Quarter: 2024Q2

REPORT INFORMATION
  Report Type: Spontaneous
  Country: US (occurrence: US)
  Receive Date: 20230521
  Receipt Date: 20240423
  Transmission Date: 20240716
  Serious: Yes (Hospitalization)
  Sender: FDA-Public Use
  Company Number: US-ALXN-A202306713

PATIENT
  Sex: Female

DRUGS (1)
  1. ULTOMIRIS [Suspect]
     Active Substance: RAVULIZUMAB-CWVZ
     Indication: Paroxysmal nocturnal haemoglobinuria
     Dosage: UNK, EVERY 8  WEEKS
     Route: 065
     Dates: start: 20220727

REACTIONS (3)
  - Splenomegaly [Not Recovered/Not Resolved]
  - Exposure during pregnancy [Unknown]
  - Off label use [Unknown]
